FAERS Safety Report 17896154 (Version 2)
Quarter: 2023Q1

REPORT INFORMATION
  Report Type: Report from Study
  Country: US (occurrence: US)
  Receive Date: 20200615
  Receipt Date: 20230130
  Transmission Date: 20230417
  Serious: Yes (Hospitalization, Disabling, Other)
  Sender: FDA-Public Use
  Company Number: US-BAYER-2019-235308

PATIENT
  Age: 56 Year
  Sex: Female

DRUGS (5)
  1. BETASERON [Suspect]
     Active Substance: INTERFERON BETA-1B
     Indication: Relapsing-remitting multiple sclerosis
     Dosage: 1 DF, QOD
     Dates: start: 20020702, end: 20030202
  2. BETASERON [Suspect]
     Active Substance: INTERFERON BETA-1B
     Indication: Relapsing-remitting multiple sclerosis
     Dosage: 1 DF, QOD
     Route: 058
     Dates: start: 20050512, end: 2015
  3. BETASERON [Suspect]
     Active Substance: INTERFERON BETA-1B
     Indication: Relapsing-remitting multiple sclerosis
     Dosage: 1 DF, QOD
     Route: 058
     Dates: start: 2016, end: 20200608
  4. EXTAVIA [Concomitant]
     Active Substance: INTERFERON BETA-1B
     Indication: Relapsing-remitting multiple sclerosis
     Dosage: UNK
     Dates: start: 2015, end: 2016
  5. LOSARTAN [Concomitant]
     Active Substance: LOSARTAN
     Indication: Hypertension
     Dosage: UNK

REACTIONS (7)
  - Chronic kidney disease [Not Recovered/Not Resolved]
  - Focal segmental glomerulosclerosis [None]
  - Disability [None]
  - Pain [None]
  - Emotional distress [None]
  - Anhedonia [None]
  - Product dose omission issue [Recovered/Resolved]

NARRATIVE: CASE EVENT DATE: 20111210
